FAERS Safety Report 5385237-X (Version None)
Quarter: 2007Q3

REPORT INFORMATION
  Report Type: 
  Country: None (occurrence: None)
  Receive Date: 20070706
  Receipt Date: 20070706
  Transmission Date: 20080115
  Serious: Yes (Hospitalization)
  Sender: FDA-Public Use
  Company Number: None

PATIENT
  Sex: Male
  Weight: 46.7 kg

DRUGS (1)
  1. COTRIM [Suspect]
     Indication: RASH PUSTULAR
     Dates: start: 20070322, end: 20070331

REACTIONS (4)
  - CONDITION AGGRAVATED [None]
  - DERMATITIS EXFOLIATIVE [None]
  - PYREXIA [None]
  - RASH PUSTULAR [None]
